FAERS Safety Report 6118635-7 (Version None)
Quarter: 2009Q1

REPORT INFORMATION
  Report Type: 
  Country: None (occurrence: None)
  Receive Date: 20090314
  Receipt Date: 20090224
  Transmission Date: 20090719
  Serious: No
  Sender: FDA-Public Use
  Company Number: US-ABBOTT-09P-163-0559203-00

PATIENT
  Sex: Male
  Weight: 80.812 kg

DRUGS (1)
  1. HUMIRA [Suspect]
     Indication: DRUG USE FOR UNKNOWN INDICATION
     Dates: start: 20090213

REACTIONS (5)
  - COUGH [None]
  - DRY MOUTH [None]
  - DRY THROAT [None]
  - NASAL CONGESTION [None]
  - NASOPHARYNGITIS [None]
